FAERS Safety Report 6546863-5 (Version None)
Quarter: 2010Q1

REPORT INFORMATION
  Report Type: 
  Country: None (occurrence: None)
  Receive Date: 20100119
  Receipt Date: 20100104
  Transmission Date: 20100710
  Serious: Yes (Other)
  Sender: FDA-Public Use
  Company Number: 2010S1000084

PATIENT
  Age: 70 Year
  Sex: Male

DRUGS (6)
  1. PHOSPHOSODA FLAVOR NOT SPECIFIED [Suspect]
     Indication: FLEXIBLE SIGMOIDOSCOPY
     Dosage: 90 ML; TOTAL; PO
     Route: 048
     Dates: start: 20050410, end: 20050410
  2. BENAZEPRIL HYDROCHLORIDE [Concomitant]
  3. CLOTRIMAZOLE [Concomitant]
  4. LORATADINE [Concomitant]
  5. OMEPRAZOLE [Concomitant]
  6. UREA [Concomitant]

REACTIONS (1)
  - RENAL FAILURE CHRONIC [None]
